FAERS Safety Report 18757973 (Version 1)
Quarter: 2021Q1

REPORT INFORMATION
  Report Type: Spontaneous
  Country: US (occurrence: US)
  Receive Date: 20210119
  Receipt Date: 20210119
  Transmission Date: 20210419
  Serious: Yes (Other)
  Sender: FDA-Public Use
  Company Number: US-GLAXOSMITHKLINE-US2021GSK012063

PATIENT
  Sex: Male

DRUGS (2)
  1. ZANTAC [Suspect]
     Active Substance: RANITIDINE HYDROCHLORIDE
     Indication: DYSPEPSIA
     Dosage: OVER THE COUNTER BOX DOSAGE|OVER THE COUNTER
     Route: 065
     Dates: start: 199609, end: 201909
  2. ZANTAC [Suspect]
     Active Substance: RANITIDINE HYDROCHLORIDE
     Indication: DYSPEPSIA
     Dosage: OVER THE COUNTER BOX DOSAGE|OVER THE COUNTER
     Route: 065
     Dates: start: 199609, end: 201909

REACTIONS (1)
  - Prostate cancer [Unknown]
